FAERS Safety Report 4959774-3 (Version None)
Quarter: 2006Q1

REPORT INFORMATION
  Report Type: 
  Country: None (occurrence: None)
  Receive Date: 20060331
  Receipt Date: 20060322
  Transmission Date: 20060701
  Serious: Yes (Hospitalization)
  Sender: FDA-Public Use
  Company Number: GB-BRISTOL-MYERS SQUIBB COMPANY-13322730

PATIENT
  Age: 53 Year
  Sex: Female
  Weight: 71 kg

DRUGS (6)
  1. CISPLATIN [Suspect]
     Indication: TONGUE NEOPLASM MALIGNANT STAGE UNSPECIFIED
     Route: 042
     Dates: start: 20060102, end: 20060126
  2. ACETAMINOPHEN [Concomitant]
     Indication: PAIN
     Route: 048
  3. SODIUM BICARBONATE [Concomitant]
     Indication: MUCOSAL INFLAMMATION
     Route: 048
     Dates: start: 20060201
  4. MS CONTIN [Concomitant]
     Indication: ORAL PAIN
     Route: 065
  5. DOMPERIDONE [Concomitant]
     Indication: NAUSEA
     Route: 065
     Dates: start: 20060205
  6. MOVICOL [Concomitant]
     Indication: CONSTIPATION
     Route: 065
     Dates: start: 20060205

REACTIONS (3)
  - NEUTROPENIA [None]
  - NEUTROPENIC SEPSIS [None]
  - PYREXIA [None]
